FAERS Safety Report 5330320-8 (Version None)
Quarter: 2007Q2

REPORT INFORMATION
  Report Type: 
  Country: None (occurrence: None)
  Receive Date: 20070521
  Receipt Date: 20070510
  Transmission Date: 20071010
  Serious: Yes (Other)
  Sender: FDA-Public Use
  Company Number: GB-PFIZER INC-2007038328

PATIENT
  Sex: Male
  Weight: 4.6 kg

DRUGS (4)
  1. SPIRONOLACTONE [Suspect]
     Dosage: DAILY DOSE:.4MG/KG
  2. ACETYLSALICYLIC ACID SRT [Interacting]
     Indication: HEART DISEASE CONGENITAL
     Dosage: DAILY DOSE:5MG/KG
  3. DIAZOXIDE [Interacting]
     Dosage: DAILY DOSE:5MG/KG
  4. FUROSEMIDE [Interacting]
     Dosage: DAILY DOSE:1MG/KG

REACTIONS (2)
  - DRUG INTERACTION [None]
  - HYPERGLYCAEMIA [None]
